FAERS Safety Report 15339478 (Version 1)
Quarter: 2018Q3

REPORT INFORMATION
  Report Type: Spontaneous
  Country: US (occurrence: US)
  Receive Date: 20180827
  Receipt Date: 20180827
  Transmission Date: 20181010
  Serious: No
  Sender: FDA-Public Use
  Company Number: None

PATIENT
  Age: 10 Year
  Sex: Female

DRUGS (1)
  1. HUMATROPE [Suspect]
     Active Substance: SOMATROPIN
     Indication: TURNER^S SYNDROME
     Dosage: OTHER FREQUENCY:6 X PER WEEK;?
     Route: 058
     Dates: start: 20180510

REACTIONS (3)
  - Gait disturbance [None]
  - Musculoskeletal discomfort [None]
  - Therapy change [None]

NARRATIVE: CASE EVENT DATE: 20180618
